FAERS Safety Report 20651861 (Version 1)
Quarter: 2022Q1

REPORT INFORMATION
  Report Type: Spontaneous
  Country: US (occurrence: None)
  Receive Date: 20220330
  Receipt Date: 20220330
  Transmission Date: 20220423
  Serious: Yes (Other)
  Sender: FDA-Public Use
  Company Number: US-ROCHE-3057727

PATIENT
  Age: 75 Year
  Sex: Female

DRUGS (1)
  1. ZELBORAF [Suspect]
     Active Substance: VEMURAFENIB
     Indication: Thyroid cancer
     Route: 048
     Dates: start: 20220222, end: 20220315

REACTIONS (4)
  - Off label use [Unknown]
  - Urticaria [Unknown]
  - Peripheral swelling [Unknown]
  - Yellow skin [Unknown]

NARRATIVE: CASE EVENT DATE: 20220315
